FAERS Safety Report 7762114-8 (Version None)
Quarter: 2011Q3

REPORT INFORMATION
  Report Type: 
  Country: None (occurrence: None)
  Receive Date: 20110920
  Receipt Date: 20110914
  Transmission Date: 20111222
  Serious: Yes (Death, Hospitalization, Other)
  Sender: FDA-Public Use
  Company Number: AU-PFIZER INC-2011195373

PATIENT
  Age: 80 Year
  Sex: Female
  Weight: 68 kg

DRUGS (15)
  1. REVATIO [Suspect]
     Indication: PULMONARY ARTERIAL HYPERTENSION
     Dosage: 20 MG, 3X/DAY
     Route: 048
     Dates: start: 20101101, end: 20110821
  2. DIGOXIN [Concomitant]
     Indication: ATRIAL FIBRILLATION
     Dosage: 62.5 UG, 1X/DAY
     Dates: end: 20110821
  3. COLECALCIFEROL [Concomitant]
     Dosage: 1 DF, 3X/DAY
  4. PRAMIPEXOLE [Concomitant]
     Dosage: 1.5 MG, 1X/DAY
     Dates: start: 20110113
  5. LASIX [Concomitant]
     Indication: POLYURIA
     Dosage: 40 MG, 2X/DAY
     Route: 048
     Dates: end: 20110821
  6. ALDACTONE [Concomitant]
     Indication: HYPERTENSION
     Dosage: UNK MG, 1X/DAY
     Dates: end: 20110821
  7. ACETYLSALICYLIC ACID [Concomitant]
     Indication: ATRIAL FIBRILLATION
     Dosage: 100 MG, 1X/DAY
     Route: 048
     Dates: end: 20110821
  8. LIPITOR [Concomitant]
     Indication: HYPERLIPIDAEMIA
     Dosage: 20 MG, 1X/DAY
     Route: 048
     Dates: end: 20110821
  9. PANTOPRAZOLE [Concomitant]
     Dosage: 40 MG, 1X/DAY
     Dates: start: 20110712
  10. ALDACTONE [Concomitant]
     Indication: OEDEMA
  11. DESVENLAFAXINE [Concomitant]
     Dosage: 50 MG, 1X/DAY
  12. ATENOLOL [Concomitant]
     Indication: HYPERTENSION
     Dosage: 50 MG, 1X/DAY
     Route: 048
     Dates: end: 20110821
  13. METFORMIN [Concomitant]
     Indication: TYPE 2 DIABETES MELLITUS
     Dosage: UNK
     Dates: end: 20110821
  14. AMBRISENTAN [Suspect]
     Indication: PULMONARY ARTERIAL HYPERTENSION
     Dosage: 5 MG, 1X/DAY
     Route: 048
     Dates: start: 20101220, end: 20110821
  15. THELIN [Suspect]
     Indication: PULMONARY ARTERIAL HYPERTENSION
     Dosage: 100 MG, 1X/DAY
     Route: 048
     Dates: start: 20081101, end: 20101215

REACTIONS (9)
  - CARDIAC FAILURE CONGESTIVE [None]
  - RENAL FAILURE ACUTE [None]
  - ANAEMIA [None]
  - CONDITION AGGRAVATED [None]
  - PANCREATITIS [None]
  - GAMMA-GLUTAMYLTRANSFERASE INCREASED [None]
  - CARDIAC FAILURE [None]
  - GENERAL PHYSICAL HEALTH DETERIORATION [None]
  - BLOOD ALKALINE PHOSPHATASE INCREASED [None]
